FAERS Safety Report 8538833-2 (Version None)
Quarter: 2012Q3

REPORT INFORMATION
  Report Type: 
  Country: None (occurrence: None)
  Receive Date: 20120706
  Receipt Date: 20120628
  Transmission Date: 20120928
  Serious: Yes (Death, Hospitalization)
  Sender: FDA-Public Use
  Company Number: 2012PROUSA01596

PATIENT
  Age: 73 Year
  Sex: Male

DRUGS (13)
  1. PROVENGE [Suspect]
  2. PROVENGE [Suspect]
  3. VYTORIN [Concomitant]
  4. ROCALTROL [Concomitant]
  5. PROVENGE [Suspect]
     Indication: PROSTATE CANCER METASTATIC
     Dosage: 250 ML, SINGLE, INTRAVENOUS, 250 ML, SINGLE, INTRAVENOUS, 250 ML, SINGLE, INTRAVENOUS
     Route: 042
     Dates: start: 20100524, end: 20120524
  6. PROVENGE [Suspect]
     Indication: PROSTATE CANCER METASTATIC
     Dosage: 250 ML, SINGLE, INTRAVENOUS, 250 ML, SINGLE, INTRAVENOUS, 250 ML, SINGLE, INTRAVENOUS
     Route: 042
     Dates: start: 20120510, end: 20120510
  7. PROVENGE [Suspect]
     Indication: PROSTATE CANCER METASTATIC
     Dosage: 250 ML, SINGLE, INTRAVENOUS, 250 ML, SINGLE, INTRAVENOUS, 250 ML, SINGLE, INTRAVENOUS
     Route: 042
     Dates: start: 20120426, end: 20120426
  8. COREG [Concomitant]
  9. MS CONTIN [Concomitant]
  10. LASIX [Concomitant]
  11. VICODIN [Concomitant]
  12. ULORIC [Concomitant]
  13. NOVOLOG [Concomitant]

REACTIONS (20)
  - PLEURAL EFFUSION [None]
  - PULMONARY EMBOLISM [None]
  - SKIN NECROSIS [None]
  - PULSE ABSENT [None]
  - CHRONIC OBSTRUCTIVE PULMONARY DISEASE [None]
  - BLOOD UREA INCREASED [None]
  - BLOOD CREATININE INCREASED [None]
  - BLOOD GLUCOSE INCREASED [None]
  - ATELECTASIS [None]
  - SLEEP APNOEA SYNDROME [None]
  - ANAEMIA [None]
  - ATRIAL FIBRILLATION [None]
  - DECUBITUS ULCER [None]
  - CARDIAC FAILURE CONGESTIVE [None]
  - UNRESPONSIVE TO STIMULI [None]
  - ACUTE RESPIRATORY FAILURE [None]
  - CARDIO-RESPIRATORY ARREST [None]
  - CHEST PAIN [None]
  - BLOOD ALKALINE PHOSPHATASE INCREASED [None]
  - INTERNATIONAL NORMALISED RATIO INCREASED [None]
